FAERS Safety Report 4886059-6 (Version None)
Quarter: 2006Q1

REPORT INFORMATION
  Report Type: 
  Country: None (occurrence: None)
  Receive Date: 20060117
  Receipt Date: 20060106
  Transmission Date: 20060701
  Serious: Yes (Hospitalization)
  Sender: FDA-Public Use
  Company Number: B0405683A

PATIENT
  Age: 16 Year
  Sex: Male

DRUGS (4)
  1. AMOXICILLIN [Suspect]
     Indication: JAW FRACTURE
     Dosage: 500 MG FOUR TIMES PER DAY INTRAVENOUS
     Route: 042
     Dates: start: 20040815, end: 20040817
  2. AMOXIL [Suspect]
     Indication: JAW FRACTURE
     Dosage: 500 FOUR TIMES PER DAY ORAL
     Route: 048
     Dates: start: 20040817, end: 20040820
  3. IBUPROFEN [Suspect]
     Dosage: 500 MG THREE TIMES PER DAY  PER R
     Dates: start: 20040815, end: 20040817
  4. IBUPROFEN [Suspect]
     Dosage: 600 MG THREE TIMES PER DAY
     Dates: start: 20040817, end: 20040820

REACTIONS (12)
  - DIARRHOEA HAEMORRHAGIC [None]
  - ENTEROCOLITIS HAEMORRHAGIC [None]
  - FAECES DISCOLOURED [None]
  - HAEMOLYTIC ANAEMIA [None]
  - HAPTOGLOBIN DECREASED [None]
  - INTESTINAL ISCHAEMIA [None]
  - LOW DENSITY LIPOPROTEIN INCREASED [None]
  - MUCOUS STOOLS [None]
  - OEDEMA MUCOSAL [None]
  - PLATELET COUNT DECREASED [None]
  - RECTAL ULCER [None]
  - THROMBOCYTOPENIA [None]
